FAERS Safety Report 8940890 (Version 1)
Quarter: 2012Q4

REPORT INFORMATION
  Report Type: 
  Country: US (occurrence: US)
  Receive Date: 20121203
  Receipt Date: 20121203
  Transmission Date: 20130627
  Serious: Yes (Disabling, Other)
  Sender: FDA-Public Use
  Company Number: US-ENDO PHARMACEUTICALS INC.-PERC20120160

PATIENT
  Sex: Male

DRUGS (9)
  1. PERCOCET [Suspect]
     Indication: PAIN
     Dosage: 10/650 MG
     Route: 048
     Dates: end: 20090107
  2. OXYCONTIN [Suspect]
     Indication: PAIN
     Route: 065
     Dates: start: 20090107
  3. XANAX [Suspect]
     Indication: ANXIETY
     Dosage: UNKNOWN
     Route: 065
  4. PAXIL [Suspect]
     Indication: PRODUCT USED FOR UNKNOWN INDICATION
     Route: 065
     Dates: end: 200901
  5. PAXIL [Suspect]
     Indication: DEPRESSION
     Route: 065
     Dates: start: 200901
  6. DEPAKOTE [Suspect]
     Indication: PRODUCT USED FOR UNKNOWN INDICATION
     Dosage: UNKNOWN
     Route: 065
     Dates: start: 200901
  7. DEPAKOTE [Suspect]
     Indication: DEPRESSION
  8. ABILIFY [Suspect]
     Indication: PRODUCT USED FOR UNKNOWN INDICATION
     Dosage: UNKNOWN
     Route: 065
     Dates: start: 200901
  9. ABILIFY [Suspect]
     Indication: DEPRESSION

REACTIONS (8)
  - Brain injury [Recovered/Resolved with Sequelae]
  - Pneumonia aspiration [Recovered/Resolved with Sequelae]
  - Suicidal behaviour [Recovered/Resolved]
  - Respiratory depression [Recovered/Resolved]
  - Overdose [Recovered/Resolved]
  - Bipolar disorder [Not Recovered/Not Resolved]
  - Generalised anxiety disorder [Not Recovered/Not Resolved]
  - Upper respiratory tract infection [Not Recovered/Not Resolved]
